FAERS Safety Report 13277618 (Version 2)
Quarter: 2017Q1

REPORT INFORMATION
  Report Type: Spontaneous
  Country: KR (occurrence: KR)
  Receive Date: 20170228
  Receipt Date: 20170315
  Transmission Date: 20170428
  Serious: Yes (Hospitalization)
  Sender: FDA-Public Use
  Company Number: KR-NATCO PHARMA-2017NAT00023

PATIENT
  Age: 17 Year
  Sex: Male

DRUGS (1)
  1. OSELTAMIVIR PHOSPHATE. [Suspect]
     Active Substance: OSELTAMIVIR PHOSPHATE
     Indication: INFLUENZA
     Dosage: 75 MG, 2X/DAY
     Route: 048

REACTIONS (1)
  - Colitis ischaemic [Recovering/Resolving]
